FAERS Safety Report 8084489-5 (Version None)
Quarter: 2012Q1

REPORT INFORMATION
  Report Type: 
  Country: None (occurrence: None)
  Receive Date: 20120128
  Receipt Date: 20110324
  Transmission Date: 20120608
  Serious: No
  Sender: FDA-Public Use
  Company Number: US-ABBOTT-11P-163-0714173-00

PATIENT
  Sex: Female
  Weight: 65.376 kg

DRUGS (6)
  1. HUMIRA [Suspect]
     Indication: CROHN'S DISEASE
     Dates: start: 20100401
  2. LEXAPRO [Concomitant]
     Indication: ANXIETY
  3. NEXIUM [Concomitant]
     Indication: GASTROOESOPHAGEAL REFLUX DISEASE
  4. XANAX [Concomitant]
     Indication: ANXIETY
  5. PROVENTIL [Concomitant]
     Indication: ASTHMA
     Route: 055
  6. PENTASA [Concomitant]
     Indication: CROHN'S DISEASE

REACTIONS (5)
  - NASAL CONGESTION [None]
  - ARTHRALGIA [None]
  - ANTINUCLEAR ANTIBODY POSITIVE [None]
  - MYALGIA [None]
  - FATIGUE [None]
